FAERS Safety Report 12521832 (Version 1)
Quarter: 2016Q3

REPORT INFORMATION
  Report Type: Spontaneous
  Country: FR (occurrence: FR)
  Receive Date: 20160701
  Receipt Date: 20160701
  Transmission Date: 20161109
  Serious: Yes (Life-Threatening, Hospitalization, Disabling)
  Sender: FDA-Public Use
  Company Number: FR-SA-2016SA120192

PATIENT
  Age: 84 Year
  Sex: Male

DRUGS (4)
  1. APROVEL [Suspect]
     Active Substance: IRBESARTAN
     Route: 065
     Dates: end: 20160407
  2. KARDEGIC [Suspect]
     Active Substance: ASPIRIN LYSINE
     Dosage: DOSAGE FORM:POWDER FOR ORAL SOLUTION IN SACHET
     Route: 048
  3. METOPROLOL. [Suspect]
     Active Substance: METOPROLOL
     Route: 048
  4. VELITEN [Suspect]
     Active Substance: ASCORBIC ACID\CHYMOTRYPSIN\RUTIN\TOCOPHEROL
     Dosage: (1 DF, 1 IN 2 DAYS(S))
     Route: 048
     Dates: end: 20160407

REACTIONS (2)
  - Haemorrhagic transformation stroke [None]
  - Ischaemic stroke [Not Recovered/Not Resolved]

NARRATIVE: CASE EVENT DATE: 20160406
